FAERS Safety Report 12280652 (Version 1)
Quarter: 2016Q2

REPORT INFORMATION
  Report Type: Spontaneous
  Country: US (occurrence: US)
  Receive Date: 20160419
  Receipt Date: 20160419
  Transmission Date: 20160815
  Serious: Yes (Hospitalization)
  Sender: FDA-Public Use
  Company Number: US-BAYER-2016-069092

PATIENT
  Sex: Female

DRUGS (1)
  1. ALEVE [Suspect]
     Active Substance: NAPROXEN SODIUM
     Indication: BACK PAIN
     Dosage: UNK

REACTIONS (9)
  - Feeling hot [None]
  - Lip swelling [None]
  - Dyspnoea [None]
  - Dysphagia [None]
  - Generalised erythema [None]
  - Pruritus [None]
  - Swollen tongue [None]
  - Dizziness [None]
  - Loss of consciousness [None]
